FAERS Safety Report 15772236 (Version 1)
Quarter: 2018Q4

REPORT INFORMATION
  Report Type: Spontaneous
  Country: FR (occurrence: FR)
  Receive Date: 20181228
  Receipt Date: 20181228
  Transmission Date: 20190205
  Serious: Yes (Other)
  Sender: FDA-Public Use
  Company Number: FR-TEVA-2018-FR-992064

PATIENT
  Age: 55 Year
  Sex: Female

DRUGS (12)
  1. ZOPICLONE [Concomitant]
     Active Substance: ZOPICLONE
  2. NORMACOL [Concomitant]
     Active Substance: HERBALS\KARAYA GUM
  3. VENTOLINE [Concomitant]
     Active Substance: ALBUTEROL
  4. PANTOPRAZOLE [Concomitant]
     Active Substance: PANTOPRAZOLE
  5. QUETIAPINE. [Concomitant]
     Active Substance: QUETIAPINE
  6. LETROZOLE. [Suspect]
     Active Substance: LETROZOLE
     Indication: BREAST CANCER
     Dosage: 2.5 MILLIGRAM DAILY;
     Route: 048
     Dates: start: 201804
  7. DIAZEPAM. [Concomitant]
     Active Substance: DIAZEPAM
  8. LAMOTRIGINE. [Concomitant]
     Active Substance: LAMOTRIGINE
  9. IBUPROFENE [Concomitant]
     Active Substance: IBUPROFEN
  10. SERTRALINE (CHLORHYDRATE DE) [Suspect]
     Active Substance: SERTRALINE HYDROCHLORIDE
     Indication: DEPRESSION
     Dosage: 200 MILLIGRAM DAILY;
     Route: 048
  11. ATORVASTATINE [Concomitant]
     Active Substance: ATORVASTATIN
  12. SERETIDE [Concomitant]
     Active Substance: FLUTICASONE PROPIONATE\SALMETEROL XINAFOATE

REACTIONS (3)
  - Muscular weakness [Not Recovered/Not Resolved]
  - Gait deviation [Not Recovered/Not Resolved]
  - Fall [Recovered/Resolved]

NARRATIVE: CASE EVENT DATE: 2018
